FAERS Safety Report 15647551 (Version 1)
Quarter: 2018Q4

REPORT INFORMATION
  Report Type: Spontaneous
  Country: US (occurrence: US)
  Receive Date: 20181122
  Receipt Date: 20181122
  Transmission Date: 20190205
  Serious: No
  Sender: FDA-Public Use
  Company Number: US-SA-2018SA317250

PATIENT
  Age: 74 Year
  Sex: Male

DRUGS (12)
  1. DUPIXENT [Suspect]
     Active Substance: DUPILUMAB
     Dosage: 300 MG, QOW
     Route: 058
     Dates: start: 201811
  2. ESOMEPRAZOLE MAGNESIUM. [Concomitant]
     Active Substance: ESOMEPRAZOLE MAGNESIUM
  3. RAMIPRIL. [Concomitant]
     Active Substance: RAMIPRIL
  4. EZETIMIBE. [Concomitant]
     Active Substance: EZETIMIBE
  5. DUPIXENT [Suspect]
     Active Substance: DUPILUMAB
     Indication: RASH PAPULAR
     Dosage: 600 MG, 1X
     Route: 058
     Dates: start: 201811, end: 201811
  6. COENZYME Q10 [Concomitant]
     Active Substance: UBIDECARENONE
  7. EUCRISA [Concomitant]
     Active Substance: CRISABOROLE
  8. METOPROLOL TARTRATE. [Concomitant]
     Active Substance: METOPROLOL TARTRATE
  9. VITAMIN D3 [Concomitant]
     Active Substance: CHOLECALCIFEROL
  10. ASPIRIN (E.C.) [Concomitant]
     Active Substance: ASPIRIN
  11. ATORVASTATIN CALCIUM. [Concomitant]
     Active Substance: ATORVASTATIN CALCIUM
  12. CLOBETASOL PROPIONATE. [Concomitant]
     Active Substance: CLOBETASOL PROPIONATE

REACTIONS (1)
  - Product use in unapproved indication [Unknown]
